FAERS Safety Report 10050026 (Version 1)
Quarter: 2014Q1

REPORT INFORMATION
  Report Type: Spontaneous
  Country: US (occurrence: None)
  Receive Date: 20140331
  Receipt Date: 20140331
  Transmission Date: 20141002
  Serious: No
  Sender: FDA-Public Use
  Company Number: None

PATIENT
  Sex: 0

DRUGS (1)
  1. FEMARA [Suspect]

REACTIONS (4)
  - Dizziness [None]
  - Paraesthesia [None]
  - Headache [None]
  - Sensory disturbance [None]
